FAERS Safety Report 6379829-9 (Version None)
Quarter: 2009Q3

REPORT INFORMATION
  Report Type: 
  Country: None (occurrence: None)
  Receive Date: 20090918
  Receipt Date: 20090619
  Transmission Date: 20100115
  Serious: Yes (Other)
  Sender: FDA-Public Use
  Company Number: ADR-238-028

PATIENT
  Age: 82 Year
  Sex: Female

DRUGS (5)
  1. AMLODIPINE BESYLATE [Suspect]
     Indication: HYPERTENSION
     Dosage: 5MG, 1 TABLET/DAY, ORAL
     Route: 048
  2. ASPIRIN [Concomitant]
  3. METOPROLOL SUCCINATE [Concomitant]
  4. WELCHOL [Concomitant]
  5. NIASPAN [Concomitant]

REACTIONS (2)
  - PRURITUS [None]
  - RASH [None]
